FAERS Safety Report 8620964-X (Version None)
Quarter: 2012Q3

REPORT INFORMATION
  Report Type: 
  Country: None (occurrence: None)
  Receive Date: 20120824
  Receipt Date: 20120814
  Transmission Date: 20120928
  Serious: Yes (Hospitalization)
  Sender: FDA-Public Use
  Company Number: MX-ELI_LILLY_AND_COMPANY-MX201208005129

PATIENT
  Age: 22 Year
  Sex: Male

DRUGS (2)
  1. HUMALOG [Suspect]
     Dosage: UNK
     Dates: start: 20080101
  2. HUMULIN N [Suspect]
     Dosage: UNK
     Dates: start: 20080101

REACTIONS (1)
  - GASTROINTESTINAL INFECTION [None]
